FAERS Safety Report 9083502 (Version 1)
Quarter: 2013Q1

REPORT INFORMATION
  Report Type: Report from Study
  Country: US (occurrence: US)
  Receive Date: 20130130
  Receipt Date: 20130130
  Transmission Date: 20140127
  Serious: No
  Sender: FDA-Public Use
  Company Number: US-ABBOTT-12P-163-0915976-00

PATIENT
  Sex: Male
  Weight: 104.42 kg

DRUGS (6)
  1. HUMIRA 40 MG/0.8 ML PEN [Suspect]
     Indication: PSORIATIC ARTHROPATHY
     Route: 058
     Dates: start: 201112, end: 201203
  2. HUMIRA 40 MG/0.8 ML PEN [Suspect]
     Indication: PSORIASIS
  3. METHOTREXATE [Concomitant]
     Indication: PSORIATIC ARTHROPATHY
     Dosage: 2 PILLS
     Dates: end: 201202
  4. METHOTREXATE [Concomitant]
     Indication: PSORIASIS
     Dosage: 4 PILLS
     Dates: start: 201202
  5. LOSARTAN HCTZ [Concomitant]
     Indication: HYPERTENSION
  6. METOPROLOL [Concomitant]
     Indication: HYPERTENSION

REACTIONS (8)
  - Mobility decreased [Recovering/Resolving]
  - Drug ineffective [Not Recovered/Not Resolved]
  - Psoriasis [Recovering/Resolving]
  - Local swelling [Recovering/Resolving]
  - Oedema peripheral [Recovering/Resolving]
  - Rheumatoid nodule [Unknown]
  - Tendon pain [Recovering/Resolving]
  - Pain in extremity [Recovering/Resolving]
